FAERS Safety Report 23256523 (Version 1)
Quarter: 2023Q4

REPORT INFORMATION
  Report Type: Spontaneous
  Country: CN (occurrence: CN)
  Receive Date: 20231204
  Receipt Date: 20231204
  Transmission Date: 20240109
  Serious: Yes (Life-Threatening, Hospitalization)
  Sender: FDA-Public Use
  Company Number: CN-JNJFOC-20231181365

PATIENT
  Age: 50 Year
  Sex: Male
  Weight: 51 kg

DRUGS (2)
  1. DARZALEX [Suspect]
     Active Substance: DARATUMUMAB
     Indication: Plasma cell myeloma
     Route: 041
     Dates: start: 20230822, end: 20230822
  2. SODIUM CHLORIDE [Concomitant]
     Active Substance: SODIUM CHLORIDE
     Dosage: ROUTE: PUMP INJECTION
     Dates: start: 20230822, end: 20230822

REACTIONS (7)
  - Infusion related reaction [Recovering/Resolving]
  - Oropharyngeal spasm [Recovered/Resolved]
  - Lacrimation disorder [Recovered/Resolved]
  - Rhinorrhoea [Recovering/Resolving]
  - Chest discomfort [Recovered/Resolved]
  - Nasal congestion [Recovering/Resolving]
  - Wheezing [Recovered/Resolved]

NARRATIVE: CASE EVENT DATE: 20230822
